FAERS Safety Report 5008709-6 (Version None)
Quarter: 2006Q2

REPORT INFORMATION
  Report Type: 
  Country: None (occurrence: None)
  Receive Date: 20060518
  Receipt Date: 20060510
  Transmission Date: 20061013
  Serious: Yes (Other)
  Sender: FDA-Public Use
  Company Number: 2006062787

PATIENT
  Age: 45 Year
  Sex: Female
  Weight: 90.7194 kg

DRUGS (5)
  1. LIPITOR [Suspect]
     Indication: BLOOD CHOLESTEROL INCREASED
     Dosage: 20 MG (20 MG, 1 IN 1 D) ORAL
     Route: 048
     Dates: start: 20060504
  2. CIMETIDINE [Concomitant]
  3. VITAMINS [Concomitant]
  4. HERBAL PREPARATION [Concomitant]
  5. RANITIDINE [Concomitant]

REACTIONS (2)
  - HAEMATOCHEZIA [None]
  - INITIAL INSOMNIA [None]
